FAERS Safety Report 8599812-2 (Version None)
Quarter: 2012Q3

REPORT INFORMATION
  Report Type: 
  Country: None (occurrence: None)
  Receive Date: 20120816
  Receipt Date: 20120804
  Transmission Date: 20120928
  Serious: Yes (Other)
  Sender: FDA-Public Use
  Company Number: TR-ELI_LILLY_AND_COMPANY-TR201208002422

PATIENT
  Sex: Female

DRUGS (5)
  1. HUMALOG [Suspect]
     Indication: DIABETES MELLITUS
     Dosage: 31 IU, QD
     Route: 058
  2. LEVOTHYROXINE SODIUM [Concomitant]
     Dosage: 150 UG, UNKNOWN
  3. FERROUS SULFATE TAB [Concomitant]
  4. HUMALOG [Suspect]
     Dosage: 3 IU, TID
     Route: 058
  5. GLUCOPHAGE [Concomitant]

REACTIONS (2)
  - BLOOD GLUCOSE DECREASED [None]
  - BLOOD GLUCOSE INCREASED [None]
